FAERS Safety Report 6361200-7 (Version None)
Quarter: 2009Q3

REPORT INFORMATION
  Report Type: 
  Country: None (occurrence: None)
  Receive Date: 20090918
  Receipt Date: 20090818
  Transmission Date: 20100115
  Serious: No
  Sender: FDA-Public Use
  Company Number: US-BAYER-200913594BCC

PATIENT
  Age: 81 Year
  Sex: Male
  Weight: 98 kg

DRUGS (7)
  1. ALEVE [Suspect]
     Indication: PAIN
     Dosage: TOTAL DAILY DOSE: 440 MG  UNIT DOSE: 220 MG
     Route: 048
     Dates: start: 20090817
  2. GABAPENTIN [Concomitant]
     Dosage: TOOK IN THE EVENING
     Route: 065
  3. CLONAZEPAM [Concomitant]
     Dosage: TOOK IN THE EVENING
     Route: 065
  4. PREVACID [Concomitant]
     Dosage: TOOK AFTER MEAL
     Route: 065
  5. LYRICA [Concomitant]
     Dosage: TOTAL DAILY DOSE: 300 MG  UNIT DOSE: 100 MG
     Route: 065
  6. OAD MEN'S HEALTH VITAMIN [Concomitant]
     Route: 048
  7. VITAMIN B COMPLEX CAP [Concomitant]
     Dosage: TOOK IN THE MORNING
     Route: 065

REACTIONS (1)
  - INSOMNIA [None]
